FAERS Safety Report 11323970 (Version 4)
Quarter: 2015Q3

REPORT INFORMATION
  Report Type: Report from Study
  Country: TW (occurrence: TW)
  Receive Date: 20150730
  Receipt Date: 20150901
  Transmission Date: 20151125
  Serious: Yes (Hospitalization, Other)
  Sender: FDA-Public Use
  Company Number: PHHY2015TW089896

PATIENT
  Age: 58 Year
  Sex: Male

DRUGS (2)
  1. GILENYA [Suspect]
     Active Substance: FINGOLIMOD HYDROCHLORIDE
     Indication: MULTIPLE SCLEROSIS
     Dosage: 0.5 MG, UNK
     Route: 048
     Dates: start: 20150311
  2. DIFLUCAN [Interacting]
     Active Substance: FLUCONAZOLE
     Indication: CRYPTOCOCCOSIS
     Dosage: UNK
     Route: 042
     Dates: start: 20141120

REACTIONS (9)
  - Drug interaction [Recovered/Resolved]
  - Vision blurred [Unknown]
  - Dry mouth [Unknown]
  - Multiple sclerosis relapse [Recovered/Resolved with Sequelae]
  - White blood cell count increased [Unknown]
  - Eye oedema [Unknown]
  - Blindness transient [Recovered/Resolved with Sequelae]
  - Hypoaesthesia [Recovered/Resolved with Sequelae]
  - Paresis [Recovered/Resolved with Sequelae]

NARRATIVE: CASE EVENT DATE: 20150610
